FAERS Safety Report 6493165-1 (Version None)
Quarter: 2009Q4

REPORT INFORMATION
  Report Type: 
  Country: None (occurrence: None)
  Receive Date: 20091214
  Receipt Date: 20091112
  Transmission Date: 20100525
  Serious: No
  Sender: FDA-Public Use
  Company Number: US-BAYER-200939601NA

PATIENT
  Sex: Female

DRUGS (2)
  1. MIRENA [Suspect]
     Indication: DRUG USE FOR UNKNOWN INDICATION
     Dosage: CONTINUOUS
     Route: 015
     Dates: start: 20091110
  2. ADVIL [Concomitant]
     Indication: HEADACHE

REACTIONS (4)
  - ABDOMINAL DISTENSION [None]
  - EYE SWELLING [None]
  - HEADACHE [None]
  - NAUSEA [None]
